FAERS Safety Report 6728280-8 (Version None)
Quarter: 2010Q2

REPORT INFORMATION
  Report Type: 
  Country: None (occurrence: None)
  Receive Date: 20100517
  Receipt Date: 20100504
  Transmission Date: 20101027
  Serious: Yes (Hospitalization)
  Sender: FDA-Public Use
  Company Number: SA-NOVOPROD-308036

PATIENT
  Sex: Male

DRUGS (1)
  1. NOVOSEVEN [Suspect]
     Indication: HAEMORRHAGE
     Dosage: 30 UG/KG

REACTIONS (1)
  - CEREBROVASCULAR ACCIDENT [None]
